FAERS Safety Report 14517620 (Version 2)
Quarter: 2018Q1

REPORT INFORMATION
  Report Type: Spontaneous
  Country: US (occurrence: US)
  Receive Date: 20180212
  Receipt Date: 20180330
  Transmission Date: 20180509
  Serious: No
  Sender: FDA-Public Use
  Company Number: US-PFIZER INC-2018050840

PATIENT
  Age: 78 Year
  Sex: Female
  Weight: 77 kg

DRUGS (10)
  1. VITAMIN D3 [Concomitant]
     Active Substance: CHOLECALCIFEROL
     Dosage: 2000 IU, 1X/DAY (BEDTIME)
     Route: 048
  2. MILK OF MAGNESIA [Concomitant]
     Active Substance: MAGNESIUM HYDROXIDE
     Indication: CONSTIPATION
     Dosage: UNK, DAILY (AS NEEDED)
     Route: 048
  3. ZOCOR [Concomitant]
     Active Substance: SIMVASTATIN
     Dosage: 20 MG, UNK (AT BEDTIME)
     Route: 048
  4. XALKORI [Suspect]
     Active Substance: CRIZOTINIB
     Indication: LUNG CARCINOMA CELL TYPE UNSPECIFIED STAGE 0
     Dosage: 250 MG, 2X/DAY
     Route: 048
     Dates: start: 201710
  5. VITAMIN B12 [Concomitant]
     Active Substance: CYANOCOBALAMIN
     Dosage: 1000 UG, 1X/DAY (AT BEDTIME)
     Route: 048
  6. NORCO [Concomitant]
     Active Substance: ACETAMINOPHEN\HYDROCODONE BITARTRATE
     Indication: PAIN
     Dosage: 2 DF, AS NEEDED (1-2 TABLETS EVERY 6 HOURS)
     Route: 048
  7. COQ10 [Concomitant]
     Active Substance: UBIDECARENONE
     Dosage: 300 MG, DAILY
     Route: 048
  8. DELTASONE [Concomitant]
     Active Substance: PREDNISONE
     Dosage: 40 MG, DAILY
     Route: 048
  9. LASIX [Concomitant]
     Active Substance: FUROSEMIDE
     Dosage: 40 MG, DAILY
     Route: 048
  10. PRESERVISION AREDS 2 PO [Concomitant]
     Dosage: 2 DF, DAILY (AT BEDTIME)
     Route: 048

REACTIONS (10)
  - Dyspnoea [Unknown]
  - Weight decreased [Unknown]
  - Decreased appetite [Unknown]
  - Peripheral swelling [Recovering/Resolving]
  - Musculoskeletal chest pain [Unknown]
  - Pain [Unknown]
  - Condition aggravated [Unknown]
  - Biopsy bone [Unknown]
  - Neoplasm progression [Unknown]
  - Wheezing [Unknown]
